FAERS Safety Report 7578198-6 (Version None)
Quarter: 2011Q2

REPORT INFORMATION
  Report Type: 
  Country: None (occurrence: None)
  Receive Date: 20110628
  Receipt Date: 20110622
  Transmission Date: 20111010
  Serious: Yes (Hospitalization)
  Sender: FDA-Public Use
  Company Number: A0933241A

PATIENT
  Sex: Female
  Weight: 12 kg

DRUGS (1)
  1. CEFUROXIME [Suspect]
     Dosage: 200MG TWICE PER DAY
     Route: 048
     Dates: start: 20110621, end: 20110621

REACTIONS (3)
  - DRUG HYPERSENSITIVITY [None]
  - SKIN PLAQUE [None]
  - ERYTHEMA [None]
